FAERS Safety Report 20217070 (Version 1)
Quarter: 2021Q4

REPORT INFORMATION
  Report Type: Other
  Country: CN (occurrence: None)
  Receive Date: 20211222
  Receipt Date: 20211222
  Transmission Date: 20220304
  Serious: Yes (Other)
  Sender: FDA-Public Use
  Company Number: CN-ROCHE-2979376

PATIENT
  Sex: Female

DRUGS (9)
  1. TRASTUZUMAB [Suspect]
     Active Substance: TRASTUZUMAB
     Indication: HER2 positive breast cancer
     Route: 041
  2. TRASTUZUMAB [Suspect]
     Active Substance: TRASTUZUMAB
     Route: 041
  3. DOCETAXEL [Suspect]
     Active Substance: DOCETAXEL
     Indication: HER2 positive breast cancer
     Dosage: EACH FOR THE LAST 4 CYCLES DAY 1 OF THE CHEMOTHERAPY CYCLE
     Route: 041
  4. CARBOPLATIN [Suspect]
     Active Substance: CARBOPLATIN
     Indication: HER2 positive breast cancer
     Dosage: THE AUC OF CARBOPLATIN IS TAKEN 6MG/(ML.MIN), INTRAVENOUS DRIP, THE FIRST DAY
     Route: 041
  5. DOXORUBICIN [Suspect]
     Active Substance: DOXORUBICIN
     Indication: HER2 positive breast cancer
     Dosage: DOXORUBICIN 60MG/M2 INTRAVENOUSLY, THE FIRST 4 CYCLES OF EACH CHEMOTHERAPY CYCLE ON THE FIRST DAY
     Route: 041
  6. CYCLOPHOSPHAMIDE [Suspect]
     Active Substance: CYCLOPHOSPHAMIDE
     Indication: HER2 positive breast cancer
     Dosage: 600MG/M2 INTRAVENOUSLY, THE FIRST 4 CYCLES OF EACH CHEMOTHERAPY CYCLE ON THE FIRST DAY
     Route: 041
  7. DIPHENHYDRAMINE [Concomitant]
     Active Substance: DIPHENHYDRAMINE
     Dosage: GIVE 0.5 HOURS BEFORE CHEMOTHERAPY
     Route: 030
  8. DEXAMETHASONE [Concomitant]
     Active Substance: DEXAMETHASONE
     Dosage: GIVE 12, 6 HOURS BEFORE CHEMOTHERAPY
     Route: 048
  9. DEXAMETHASONE [Concomitant]
     Active Substance: DEXAMETHASONE
     Dosage: GIVE 0.5 HOURS BEFORE CHEMOTHERAPY
     Route: 030

REACTIONS (7)
  - Cardiotoxicity [Recovering/Resolving]
  - Myelosuppression [Recovering/Resolving]
  - Nausea [Recovering/Resolving]
  - Diarrhoea [Recovering/Resolving]
  - Alopecia [Recovering/Resolving]
  - Hypersensitivity [Recovering/Resolving]
  - Vomiting [Recovering/Resolving]
